FAERS Safety Report 23953666 (Version 6)
Quarter: 2025Q3

REPORT INFORMATION
  Report Type: Spontaneous
  Country: JP (occurrence: JP)
  Receive Date: 20240608
  Receipt Date: 20250827
  Transmission Date: 20251021
  Serious: Yes (Death, Hospitalization, Other)
  Sender: UNITED THERAPEUTICS
  Company Number: JP-UNITED THERAPEUTICS-UNT-2024-002010

PATIENT
  Age: 68 Year
  Sex: Female

DRUGS (4)
  1. TREPROSTINIL [Suspect]
     Active Substance: TREPROSTINIL
     Indication: Idiopathic interstitial pneumonia
     Dosage: 18 ?G, QID
     Dates: start: 20240116, end: 20240404
  2. TREPROSTINIL [Suspect]
     Active Substance: TREPROSTINIL
     Dosage: 18 ?G, QID (RESTARTED)
     Dates: start: 20240502
  3. OFEV [Suspect]
     Active Substance: NINTEDANIB
     Indication: Product used for unknown indication
     Dosage: 150 MG, QD
     Dates: start: 202405, end: 20240531
  4. OFEV [Suspect]
     Active Substance: NINTEDANIB
     Dosage: 100 MG, QD
     Dates: start: 20240531

REACTIONS (10)
  - Death [Fatal]
  - Lung disorder [Unknown]
  - Condition aggravated [Unknown]
  - Pneumonia [Unknown]
  - Cough [Unknown]
  - Oropharyngeal discomfort [Recovering/Resolving]
  - Palpitations [Unknown]
  - Diarrhoea [Unknown]
  - Off label use [Unknown]
  - Idiopathic interstitial pneumonia [Unknown]

NARRATIVE: CASE EVENT DATE: 20240101
